APPROVED DRUG PRODUCT: CHILDREN'S FEXOFENADINE HYDROCHLORIDE HIVES
Active Ingredient: FEXOFENADINE HYDROCHLORIDE
Strength: 30MG
Dosage Form/Route: TABLET, ORALLY DISINTEGRATING;ORAL
Application: A202978 | Product #002
Applicant: DR REDDYS LABORATORIES LTD
Approved: Jan 18, 2013 | RLD: No | RS: No | Type: DISCN